FAERS Safety Report 5120063-8 (Version None)
Quarter: 2006Q3

REPORT INFORMATION
  Report Type: 
  Country: None (occurrence: None)
  Receive Date: 20060929
  Receipt Date: 20060920
  Transmission Date: 20061208
  Serious: Yes (Other)
  Sender: FDA-Public Use
  Company Number: L06-FRA-03815-01

PATIENT
  Age: 52 Year
  Sex: Female

DRUGS (1)
  1. CARBAMAZEPINE [Suspect]
     Indication: PARTIAL SEIZURES
     Dosage: 600 MG QD
     Dates: start: 19930101, end: 19941101

REACTIONS (3)
  - CRYPTOGENIC ORGANISING PNEUMONIA [None]
  - HAPTOGLOBIN INCREASED [None]
  - LUPUS-LIKE SYNDROME [None]
